FAERS Safety Report 4924816-8 (Version None)
Quarter: 2006Q1

REPORT INFORMATION
  Report Type: 
  Country: None (occurrence: None)
  Receive Date: 20060227
  Receipt Date: 20050414
  Transmission Date: 20060701
  Serious: Yes (Hospitalization, Disabling)
  Sender: FDA-Public Use
  Company Number: US-MERCK-0504USA02672

PATIENT
  Age: 37 Year
  Sex: Female
  Weight: 67 kg

DRUGS (23)
  1. VIOXX [Suspect]
     Indication: ARTHRITIS
     Route: 048
     Dates: start: 19990625, end: 20040401
  2. VIOXX [Suspect]
     Indication: RHEUMATOID ARTHRITIS
     Route: 048
     Dates: start: 19990625, end: 20040401
  3. METHOTREXATE [Concomitant]
     Route: 065
  4. FOLIC ACID [Concomitant]
     Route: 065
  5. LEUCOVORIN CALCIUM [Concomitant]
     Route: 065
  6. PLAQUENIL [Concomitant]
     Route: 065
  7. ENBREL [Concomitant]
     Route: 065
  8. IMURAN [Concomitant]
     Route: 065
  9. SULFASALAZINE [Concomitant]
     Route: 065
  10. MINOCYCLINE [Concomitant]
     Route: 065
  11. CYTOXAN [Concomitant]
     Route: 065
  12. ARAVA [Concomitant]
     Route: 065
  13. NEORAL [Concomitant]
     Route: 065
  14. RIDAURA [Concomitant]
     Route: 065
  15. PREDNISONE [Concomitant]
     Route: 065
  16. RELAFEN [Concomitant]
     Route: 065
  17. MAGNESIUM (UNSPECIFIED) [Concomitant]
     Route: 065
  18. ALLEGRA [Concomitant]
     Route: 065
  19. ALESSE [Concomitant]
     Route: 065
  20. OS-CAL [Concomitant]
     Route: 065
  21. PULMICORT [Concomitant]
     Route: 065
  22. SEREVENT [Concomitant]
     Route: 065
  23. ALBUTEROL [Concomitant]
     Route: 065

REACTIONS (10)
  - ACUTE MYOCARDIAL INFARCTION [None]
  - ANAEMIA [None]
  - ASTHMA [None]
  - CORONARY ARTERY DISEASE [None]
  - ISCHAEMIC CARDIOMYOPATHY [None]
  - LIMB INJURY [None]
  - LIMB OPERATION [None]
  - RIB FRACTURE [None]
  - VENTRICULAR HYPOKINESIA [None]
  - VISUAL DISTURBANCE [None]
